FAERS Safety Report 18705665 (Version 1)
Quarter: 2021Q1

REPORT INFORMATION
  Report Type: Spontaneous
  Country: US (occurrence: US)
  Receive Date: 20210105
  Receipt Date: 20210105
  Transmission Date: 20210419
  Serious: Yes (Hospitalization)
  Sender: FDA-Public Use
  Company Number: None

PATIENT
  Age: 72 Year
  Sex: Male
  Weight: 104.6 kg

DRUGS (9)
  1. OXYBUTYNIN 24?HR 10 MG TAB [Concomitant]
     Dates: start: 20200514, end: 20210105
  2. CHOLECALCIFEROL CAPSULE [Concomitant]
     Active Substance: CHOLECALCIFEROL
     Dates: start: 20200211, end: 20210105
  3. METFORMIN 1000 MG TAB [Concomitant]
     Dates: start: 20200211, end: 20210105
  4. OMEPRAZOLE DR 40 MG CAPSULE [Concomitant]
     Active Substance: OMEPRAZOLE
     Dates: start: 20201111, end: 20210105
  5. BAMLANIVIMAB. [Suspect]
     Active Substance: BAMLANIVIMAB
     Indication: COVID-19
     Dosage: ?          OTHER FREQUENCY:ONCE;?
     Route: 042
     Dates: start: 20201216, end: 20201216
  6. FISH OIL?OMEGA?3 FATTY ACIDS 1000 MG CAPSULE [Concomitant]
     Dates: start: 20200211, end: 20210105
  7. ATORVASTATIN 40 MG TAB [Concomitant]
     Dates: start: 20200814, end: 20210105
  8. METOPROLOL SUCCINATE 24 HR 25 MG TAB [Concomitant]
     Dates: start: 20201111, end: 20210105
  9. EMPAGLIFLOZIN 10 MG TAB [Concomitant]
     Dates: start: 20200211, end: 20210105

REACTIONS (2)
  - Oxygen saturation decreased [None]
  - Cough [None]

NARRATIVE: CASE EVENT DATE: 20201216
